FAERS Safety Report 25439243 (Version 1)
Quarter: 2025Q2

REPORT INFORMATION
  Report Type: Report from Study
  Country: CN (occurrence: CN)
  Receive Date: 20250616
  Receipt Date: 20250616
  Transmission Date: 20250717
  Serious: Yes (Life-Threatening, Other)
  Sender: ROCHE
  Company Number: US-ROCHE-10000303749

PATIENT

DRUGS (18)
  1. BEVACIZUMAB [Suspect]
     Active Substance: BEVACIZUMAB
     Indication: Non-small cell lung cancer stage IV
     Route: 065
  2. ALECTINIB [Suspect]
     Active Substance: ALECTINIB
     Indication: Non-small cell lung cancer stage IV
     Route: 065
  3. ERLOTINIB [Suspect]
     Active Substance: ERLOTINIB
     Indication: Non-small cell lung cancer stage IV
     Route: 065
  4. POZIOTINIB [Suspect]
     Active Substance: POZIOTINIB
     Indication: Non-small cell lung cancer stage IV
     Route: 065
  5. OSIMERTINIB [Suspect]
     Active Substance: OSIMERTINIB
     Indication: Non-small cell lung cancer stage IV
     Route: 065
  6. AFATINIB [Suspect]
     Active Substance: AFATINIB
     Indication: Non-small cell lung cancer stage IV
     Route: 065
  7. CRIZOTINIB [Suspect]
     Active Substance: CRIZOTINIB
     Indication: Non-small cell lung cancer stage IV
     Route: 065
  8. TEMSIROLIMUS [Suspect]
     Active Substance: TEMSIROLIMUS
     Indication: Non-small cell lung cancer stage IV
     Route: 065
  9. CETUXIMAB [Suspect]
     Active Substance: CETUXIMAB
     Indication: Non-small cell lung cancer stage IV
     Route: 065
  10. CERITINIB [Suspect]
     Active Substance: CERITINIB
     Indication: Non-small cell lung cancer stage IV
     Route: 065
  11. SUNITINIB [Suspect]
     Active Substance: SUNITINIB
     Indication: Non-small cell lung cancer stage IV
     Route: 065
  12. GEFITINIB [Suspect]
     Active Substance: GEFITINIB
     Indication: Non-small cell lung cancer stage IV
     Route: 065
  13. BRIGATINIB [Suspect]
     Active Substance: BRIGATINIB
     Indication: Non-small cell lung cancer stage IV
     Route: 065
  14. DACOMITINIB [Suspect]
     Active Substance: DACOMITINIB
     Indication: Non-small cell lung cancer stage IV
     Route: 065
  15. CEDIRANIB [Suspect]
     Active Substance: CEDIRANIB
     Indication: Non-small cell lung cancer stage IV
     Route: 065
  16. SELUMETINIB [Suspect]
     Active Substance: SELUMETINIB
     Indication: Non-small cell lung cancer stage IV
     Route: 065
  17. VANDETANIB [Suspect]
     Active Substance: VANDETANIB
     Indication: Non-small cell lung cancer stage IV
     Route: 065
  18. EVEROLIMUS [Suspect]
     Active Substance: EVEROLIMUS
     Indication: Non-small cell lung cancer stage IV
     Route: 065

REACTIONS (13)
  - Rash [Unknown]
  - Xerosis [Unknown]
  - Pruritus [Unknown]
  - Erythema [Unknown]
  - Mucosal inflammation [Unknown]
  - Paronychia [Unknown]
  - Nail disorder [Unknown]
  - Fatigue [Unknown]
  - Diarrhoea [Unknown]
  - Nausea [Unknown]
  - Decreased appetite [Unknown]
  - Vomiting [Unknown]
  - Anaemia [Unknown]
